FAERS Safety Report 22912529 (Version 3)
Quarter: 2023Q4

REPORT INFORMATION
  Report Type: Spontaneous
  Country: JP (occurrence: JP)
  Receive Date: 20230906
  Receipt Date: 20231109
  Transmission Date: 20240109
  Serious: No
  Sender: FDA-Public Use
  Company Number: JP-PFIZER INC-PV202300142806

PATIENT
  Age: 4 Year

DRUGS (1)
  1. NGENLA [Suspect]
     Active Substance: SOMATROGON-GHLA
     Dosage: 12 MG, WEEKLY
     Route: 058

REACTIONS (3)
  - Incorrect dose administered [Unknown]
  - Injection site swelling [Recovered/Resolved]
  - Injection site pain [Unknown]
